FAERS Safety Report 12481159 (Version 1)
Quarter: 2016Q2

REPORT INFORMATION
  Report Type: Spontaneous
  Country: US (occurrence: US)
  Receive Date: 20160620
  Receipt Date: 20160620
  Transmission Date: 20160815
  Serious: No
  Sender: FDA-Public Use
  Company Number: US-BAUSCH-2015PROUSA04436

PATIENT
  Age: 85 Year
  Sex: Male
  Weight: 84.35 kg

DRUGS (5)
  1. CASODEX [Concomitant]
     Active Substance: BICALUTAMIDE
     Indication: PROSTATE CANCER
     Dosage: 50 MG, UNK
     Route: 048
  2. PROVENGE [Suspect]
     Active Substance: SIPULEUCEL-T
     Dosage: 250 ML, SINGLE
     Route: 042
     Dates: start: 20150410, end: 20150410
  3. PROVENGE [Suspect]
     Active Substance: SIPULEUCEL-T
     Indication: PROSTATE CANCER METASTATIC
     Dosage: 250 ML, SINGLE
     Route: 042
     Dates: start: 20150327, end: 20150327
  4. ASPIRIN. [Concomitant]
     Active Substance: ASPIRIN
     Indication: PRODUCT USED FOR UNKNOWN INDICATION
     Dosage: 81 MG, BID
     Route: 048
  5. PROVENGE [Suspect]
     Active Substance: SIPULEUCEL-T
     Dosage: 250 ML, SINGLE
     Route: 042
     Dates: start: 20150501, end: 20150501

REACTIONS (10)
  - Procedural complication [Recovered/Resolved]
  - Paraesthesia [Recovered/Resolved]
  - Confusional state [Recovered/Resolved]
  - Vein disorder [Unknown]
  - Pallor [Recovered/Resolved]
  - Presyncope [Unknown]
  - Heart rate decreased [Recovered/Resolved]
  - Unresponsive to stimuli [Recovered/Resolved]
  - Lip discolouration [Recovered/Resolved]
  - Musculoskeletal pain [Unknown]

NARRATIVE: CASE EVENT DATE: 20150421
